FAERS Safety Report 26038881 (Version 1)
Quarter: 2025Q4

REPORT INFORMATION
  Report Type: Spontaneous
  Country: EU (occurrence: EU)
  Receive Date: 20251113
  Receipt Date: 20251113
  Transmission Date: 20260119
  Serious: Yes (Death, Hospitalization, Other)
  Sender: ABBVIE
  Company Number: EU-MIBEB-20252556

PATIENT
  Age: 78 Year
  Sex: Female

DRUGS (16)
  1. DEXAMETHASONE [Suspect]
     Active Substance: DEXAMETHASONE
     Indication: Product used for unknown indication
     Route: 065
     Dates: start: 201911, end: 202001
  2. DEXAMETHASONE [Suspect]
     Active Substance: DEXAMETHASONE
     Route: 065
     Dates: start: 201906, end: 201911
  3. DEXAMETHASONE [Suspect]
     Active Substance: DEXAMETHASONE
     Route: 065
     Dates: start: 201808, end: 201906
  4. DEXAMETHASONE [Suspect]
     Active Substance: DEXAMETHASONE
     Route: 065
     Dates: start: 202312, end: 202404
  5. CHOLECALCIFEROL [Suspect]
     Active Substance: CHOLECALCIFEROL
     Indication: Osteoporosis
     Dosage: ADMINISTRATION EVERY WEDNESDAY FOR ABOUT 8 YEARS
     Route: 048
  6. PREDNISOLONE [Suspect]
     Active Substance: PREDNISOLONE
     Indication: Product used for unknown indication
     Dosage: PULSE THERAPY
     Route: 065
     Dates: start: 202508
  7. CYCLOPHOSPHAMIDE [Concomitant]
     Active Substance: CYCLOPHOSPHAMIDE
     Indication: Product used for unknown indication
     Dates: start: 201911, end: 202001
  8. CYCLOPHOSPHAMIDE [Concomitant]
     Active Substance: CYCLOPHOSPHAMIDE
     Indication: Product used for unknown indication
     Dates: start: 202408, end: 202409
  9. POMALIDOMIDE [Concomitant]
     Active Substance: POMALIDOMIDE
     Indication: Product used for unknown indication
     Dates: start: 201911, end: 202001
  10. CARFILZOMIB [Concomitant]
     Active Substance: CARFILZOMIB
     Indication: Product used for unknown indication
     Dates: start: 202312, end: 202404
  11. DARATUMUMAB [Concomitant]
     Active Substance: DARATUMUMAB
     Indication: Product used for unknown indication
     Dates: start: 201906, end: 201911
  12. BORTEZOMIB [Concomitant]
     Active Substance: BORTEZOMIB
     Indication: Product used for unknown indication
     Dates: start: 201906, end: 201911
  13. FLUDARABINE PHOSPHATE [Concomitant]
     Active Substance: FLUDARABINE PHOSPHATE
     Indication: Product used for unknown indication
     Dates: start: 202408, end: 202409
  14. LENALIDOMIDE [Concomitant]
     Active Substance: LENALIDOMIDE
     Indication: Product used for unknown indication
     Dates: start: 201808, end: 201906
  15. LENALIDOMIDE [Concomitant]
     Active Substance: LENALIDOMIDE
     Indication: Product used for unknown indication
     Dates: start: 202101, end: 202309
  16. ELOTUZUMAB [Concomitant]
     Active Substance: ELOTUZUMAB
     Indication: Product used for unknown indication
     Dates: start: 202101, end: 202309

REACTIONS (13)
  - Chronic obstructive pulmonary disease [Fatal]
  - Renal failure [Fatal]
  - Urinary tract infection bacterial [Fatal]
  - Respiratory failure [Fatal]
  - Pneumonia [Fatal]
  - Palpitations [Unknown]
  - Microvascular coronary artery disease [Unknown]
  - COVID-19 pneumonia [Unknown]
  - Hospitalisation [Recovered/Resolved]
  - Hospitalisation [Recovered/Resolved]
  - Hypothyroidism [Unknown]
  - Oropharyngeal squamous cell carcinoma [Unknown]
  - Tonsillectomy [Unknown]

NARRATIVE: CASE EVENT DATE: 20210601
